FAERS Safety Report 12137359 (Version 1)
Quarter: 2016Q1

REPORT INFORMATION
  Report Type: Report from Study
  Country: US (occurrence: US)
  Receive Date: 20160302
  Receipt Date: 20160302
  Transmission Date: 20160526
  Serious: Yes (Other)
  Sender: FDA-Public Use
  Company Number: US-CELGENE-163-21660-12061208

PATIENT

DRUGS (3)
  1. GEMCITABINE [Suspect]
     Active Substance: GEMCITABINE\GEMCITABINE HYDROCHLORIDE
     Indication: PANCREATIC CARCINOMA
     Route: 041
  2. ERLOTINIB [Suspect]
     Active Substance: ERLOTINIB
     Indication: PANCREATIC CARCINOMA
     Dosage: 75-150 MG/M2
     Route: 065
  3. ABRAXANE [Suspect]
     Active Substance: PACLITAXEL
     Indication: PANCREATIC CARCINOMA
     Dosage: 75-125 MG/M2
     Route: 041

REACTIONS (35)
  - Hypokalaemia [Unknown]
  - Dizziness [Unknown]
  - Alopecia [Unknown]
  - Performance status decreased [Unknown]
  - Rash [Unknown]
  - Alanine aminotransferase increased [Unknown]
  - Fatigue [Unknown]
  - Constipation [Unknown]
  - Thrombocytopenia [Unknown]
  - Hypoalbuminaemia [Unknown]
  - Oral dysaesthesia [Unknown]
  - Decreased appetite [Unknown]
  - Lymphopenia [Unknown]
  - Stomatitis [Unknown]
  - Melaena [Unknown]
  - Nausea [Unknown]
  - Anaemia [Unknown]
  - Vomiting [Unknown]
  - Pyrexia [Unknown]
  - Dysgeusia [Unknown]
  - Neutropenia [Unknown]
  - Hypotension [Unknown]
  - Transaminases increased [Unknown]
  - Aspartate aminotransferase increased [Unknown]
  - Epistaxis [Unknown]
  - Dyspnoea [Unknown]
  - Sepsis [Unknown]
  - Diarrhoea [Unknown]
  - Leukopenia [Unknown]
  - Weight decreased [Unknown]
  - Dehydration [Unknown]
  - Chills [Unknown]
  - Dry mouth [Unknown]
  - Blood alkaline phosphatase increased [Unknown]
  - White blood cell count decreased [Unknown]
